FAERS Safety Report 24111550 (Version 3)
Quarter: 2024Q3

REPORT INFORMATION
  Report Type: Spontaneous
  Country: US (occurrence: US)
  Receive Date: 20240718
  Receipt Date: 20240812
  Transmission Date: 20241016
  Serious: No
  Sender: BAUSCH AND LOMB
  Company Number: US-BAUSCH-BL-2024-010668

PATIENT
  Age: 43 Year
  Sex: Male

DRUGS (1)
  1. XIFAXAN [Suspect]
     Active Substance: RIFAXIMIN
     Indication: Hepatic cirrhosis
     Route: 065
     Dates: start: 20240619, end: 2024

REACTIONS (4)
  - Drug intolerance [Unknown]
  - Somnolence [Unknown]
  - Fall [Unknown]
  - Hypersensitivity [Unknown]
